FAERS Safety Report 6078019-7 (Version None)
Quarter: 2009Q1

REPORT INFORMATION
  Report Type: 
  Country: None (occurrence: None)
  Receive Date: 20090213
  Receipt Date: 20090203
  Transmission Date: 20090719
  Serious: Yes (Other)
  Sender: FDA-Public Use
  Company Number: FR-PFIZER INC-2009165803

PATIENT

DRUGS (1)
  1. ZYVOXID [Suspect]
     Dates: end: 20090201

REACTIONS (1)
  - POLYURIA [None]
